FAERS Safety Report 16055472 (Version 1)
Quarter: 2019Q1

REPORT INFORMATION
  Report Type: Spontaneous
  Country: JP (occurrence: JP)
  Receive Date: 20190311
  Receipt Date: 20190311
  Transmission Date: 20190418
  Serious: Yes (Life-Threatening)
  Sender: FDA-Public Use
  Company Number: JP-VIIV HEALTHCARE LIMITED-JP2019JPN042418

PATIENT
  Age: 83 Year
  Sex: Male

DRUGS (8)
  1. NEXIUM [Concomitant]
     Active Substance: ESOMEPRAZOLE MAGNESIUM
     Dosage: UNK
  2. FERROUS SODIUM CITRATE [Concomitant]
     Active Substance: SODIUM FERROUS CITRATE
     Dosage: UNK
  3. XTANDI [Suspect]
     Active Substance: ENZALUTAMIDE
     Indication: PLATELET COUNT DECREASED
     Dosage: 160 MG, QD
     Route: 048
     Dates: start: 20180822, end: 20180907
  4. ZEFIX [Suspect]
     Active Substance: LAMIVUDINE
     Indication: PLATELET COUNT DECREASED
     Dosage: 100 MG, QD
     Route: 048
     Dates: start: 20131210
  5. FUROSEMIDE. [Concomitant]
     Active Substance: FUROSEMIDE
     Dosage: UNK
  6. SPIRONOLACTONE. [Concomitant]
     Active Substance: SPIRONOLACTONE
     Dosage: UNK
  7. LIVACT [Concomitant]
     Active Substance: AMINO ACIDS
     Dosage: UNK
  8. XTANDI [Suspect]
     Active Substance: ENZALUTAMIDE
     Dosage: 80 MG, QD(AFTER BREAKFAST)
     Route: 048
     Dates: start: 20181116

REACTIONS (1)
  - Platelet count decreased [Recovered/Resolved]

NARRATIVE: CASE EVENT DATE: 20180908
